FAERS Safety Report 5192173-0 (Version None)
Quarter: 2006Q4

REPORT INFORMATION
  Report Type: 
  Country: None (occurrence: None)
  Receive Date: 20061220
  Receipt Date: 20061205
  Transmission Date: 20070319
  Serious: Yes (Other)
  Sender: FDA-Public Use
  Company Number: 2006S1011242

PATIENT
  Age: 66 Year
  Sex: Male
  Weight: 90.7194 kg

DRUGS (6)
  1. EXTENDED PHENYTOIN SODIUM [Suspect]
     Indication: CONVULSION
     Dosage: 300 MG; BID; PO
     Route: 048
     Dates: start: 20060601, end: 20061204
  2. ONDANSETRON (CON.) [Concomitant]
  3. DEXAMETHASONE (CON.) [Concomitant]
  4. TEMOZOLOMIDE (CON.) [Concomitant]
  5. AMOXICILLIN SODIUM W/CLAVULANATE POTASSIUM (CON.) [Concomitant]
  6. GUAIFENESIN (CON.) [Concomitant]

REACTIONS (5)
  - AURA [None]
  - DRUG LEVEL DECREASED [None]
  - DRUG LEVEL FLUCTUATING [None]
  - PHARMACEUTICAL PRODUCT COMPLAINT [None]
  - TIC [None]
